FAERS Safety Report 11347509 (Version 1)
Quarter: 2015Q3

REPORT INFORMATION
  Report Type: Spontaneous
  Country: US (occurrence: US)
  Receive Date: 20150803
  Receipt Date: 20150803
  Transmission Date: 20151125
  Serious: No
  Sender: FDA-Public Use
  Company Number: US-ELI_LILLY_AND_COMPANY-US201106003277

PATIENT
  Age: 7 Year
  Sex: Male

DRUGS (3)
  1. STRATTERA [Suspect]
     Active Substance: ATOMOXETINE HYDROCHLORIDE
     Dosage: 40 MG, UNK
     Dates: start: 201105, end: 20110608
  2. GUANFACINE. [Concomitant]
     Active Substance: GUANFACINE
  3. STRATTERA [Suspect]
     Active Substance: ATOMOXETINE HYDROCHLORIDE
     Indication: ATTENTION DEFICIT/HYPERACTIVITY DISORDER
     Dosage: 25 MG, UNK
     Dates: start: 201102, end: 201103

REACTIONS (5)
  - Anger [Recovered/Resolved]
  - Impulsive behaviour [Unknown]
  - Emotional disorder [Recovered/Resolved]
  - Affect lability [Unknown]
  - Weight decreased [Unknown]
